FAERS Safety Report 11195366 (Version 2)
Quarter: 2015Q2

REPORT INFORMATION
  Report Type: Spontaneous
  Country: JP (occurrence: None)
  Receive Date: 20150615
  Receipt Date: 20150625
  Transmission Date: 20150821
  Serious: Yes (Other)
  Sender: FDA-Public Use
  Company Number: JP2015JPN076468

PATIENT
  Sex: Male

DRUGS (7)
  1. TIVICAY [Suspect]
     Active Substance: DOLUTEGRAVIR SODIUM
     Indication: HIV INFECTION
     Route: 048
     Dates: start: 201505
  2. URSO [Suspect]
     Active Substance: URSODIOL
     Route: 048
  3. EPZICOM [Suspect]
     Active Substance: ABACAVIR SULFATE\LAMIVUDINE
     Indication: HIV INFECTION
     Route: 048
     Dates: start: 201505
  4. BAKTAR (SULFAMETHOXAZOLE/TRIMETHOPRIM) [Suspect]
     Active Substance: SULFAMETHOXAZOLE\TRIMETHOPRIM
     Route: 048
  5. VALIXA (VALGANCICLOVIR) TABLET [Suspect]
     Active Substance: VALGANCICLOVIR
     Route: 048
  6. VFEND [Suspect]
     Active Substance: VORICONAZOLE
  7. GASTER [Suspect]
     Active Substance: FAMOTIDINE

REACTIONS (5)
  - Pneumonia cryptococcal [None]
  - Pneumocystis jirovecii pneumonia [None]
  - Immune reconstitution inflammatory syndrome [None]
  - Interstitial lung disease [None]
  - Chest X-ray abnormal [None]

NARRATIVE: CASE EVENT DATE: 201506
